FAERS Safety Report 18415235 (Version 1)
Quarter: 2020Q4

REPORT INFORMATION
  Report Type: Spontaneous
  Country: US (occurrence: US)
  Receive Date: 20201022
  Receipt Date: 20201022
  Transmission Date: 20210114
  Serious: Yes (Hospitalization)
  Sender: FDA-Public Use
  Company Number: None

PATIENT
  Age: 80 Year
  Sex: Male
  Weight: 65 kg

DRUGS (2)
  1. ATORVASTATIN (ATORVASTATIN CA 80MG TAB) [Suspect]
     Active Substance: ATORVASTATIN
     Indication: CAROTID ARTERY RESTENOSIS
     Route: 048
     Dates: start: 20200901, end: 20201003
  2. ATORVASTATIN (ATORVASTATIN CA 80MG TAB) [Suspect]
     Active Substance: ATORVASTATIN
     Indication: RETINAL ISCHAEMIA
     Route: 048
     Dates: start: 20200901, end: 20201003

REACTIONS (7)
  - Asthenia [None]
  - Blood creatine phosphokinase increased [None]
  - Gait inability [None]
  - Alanine aminotransferase increased [None]
  - Aspartate aminotransferase increased [None]
  - Rhabdomyolysis [None]
  - Transaminases increased [None]

NARRATIVE: CASE EVENT DATE: 20200929
